FAERS Safety Report 8445109-0 (Version None)
Quarter: 2012Q2

REPORT INFORMATION
  Report Type: 
  Country: None (occurrence: None)
  Receive Date: 20120605
  Receipt Date: 20120522
  Transmission Date: 20120825
  Serious: Yes (Death)
  Sender: FDA-Public Use
  Company Number: DSA_57555_2012

PATIENT
  Sex: Female

DRUGS (6)
  1. HYALEIN [Concomitant]
  2. PEGAPTANIB SODIUM (PEGAPTANIB SODIUM) [Suspect]
     Indication: CHOROIDAL NEOVASCULARISATION
     Dosage: (0.3 MG/TIME INTRAOCULAR)
     Route: 031
     Dates: start: 20100125, end: 20100419
  3. PEGAPTANIB SODIUM (PEGAPTANIB SODIUM) [Suspect]
     Indication: AGE-RELATED MACULAR DEGENERATION
     Dosage: (0.3 MG/TIME INTRAOCULAR)
     Route: 031
     Dates: start: 20100125, end: 20100419
  4. VERTEPORFIN [Concomitant]
  5. LEVOFLOXACIN [Concomitant]
  6. OFLOXACIN [Concomitant]

REACTIONS (1)
  - BLOOD PRESSURE SYSTOLIC INCREASED [None]
